FAERS Safety Report 14849329 (Version 1)
Quarter: 2018Q2

REPORT INFORMATION
  Report Type: Spontaneous
  Country: US (occurrence: US)
  Receive Date: 20180504
  Receipt Date: 20180504
  Transmission Date: 20180711
  Serious: No
  Sender: FDA-Public Use
  Company Number: US-BIOMARINAP-US-2018-117992

PATIENT
  Sex: Male
  Weight: 14 kg

DRUGS (5)
  1. TYLENOL [Concomitant]
     Active Substance: ACETAMINOPHEN
     Indication: PYREXIA
  2. VIMIZIM [Suspect]
     Active Substance: ELOSULFASE ALFA
     Indication: MUCOPOLYSACCHARIDOSIS IV
     Dosage: UNK, QW
     Route: 042
     Dates: start: 20170321
  3. VASELINE                           /00473501/ [Concomitant]
     Active Substance: PARAFFIN
     Indication: RASH
  4. AMOXICILLIN. [Concomitant]
     Active Substance: AMOXICILLIN
     Indication: EAR INFECTION
  5. CEFDINIR. [Concomitant]
     Active Substance: CEFDINIR
     Indication: EAR INFECTION
     Dosage: 4 ML, BID
     Route: 048

REACTIONS (1)
  - Vomiting [Not Recovered/Not Resolved]
